FAERS Safety Report 23023418 (Version 4)
Quarter: 2024Q1

REPORT INFORMATION
  Report Type: Spontaneous
  Country: RS (occurrence: RS)
  Receive Date: 20231003
  Receipt Date: 20240103
  Transmission Date: 20240410
  Serious: Yes (Hospitalization, Other)
  Sender: FDA-Public Use
  Company Number: RS-ALXN-A202312650

PATIENT
  Sex: Male
  Weight: 65 kg

DRUGS (4)
  1. ULTOMIRIS [Suspect]
     Active Substance: RAVULIZUMAB-CWVZ
     Indication: Paroxysmal nocturnal haemoglobinuria
     Dosage: UNK
     Route: 065
     Dates: start: 20230328
  2. GLOFORMIN [Concomitant]
     Indication: Product used for unknown indication
     Dosage: 1000 MG, QD
     Route: 048
  3. RIVAROXABAN [Concomitant]
     Active Substance: RIVAROXABAN
     Indication: Product used for unknown indication
     Dosage: 20 MG, QD
     Route: 048
  4. FOLIC ACID [Concomitant]
     Active Substance: FOLIC ACID
     Indication: Product used for unknown indication
     Dosage: 1 DF, QD
     Route: 048

REACTIONS (5)
  - Nephrolithiasis [Unknown]
  - Pyelonephritis [Unknown]
  - Haemolysis [Unknown]
  - Therapy partial responder [Unknown]
  - Laboratory test abnormal [Unknown]
